FAERS Safety Report 25621455 (Version 1)
Quarter: 2025Q3

REPORT INFORMATION
  Report Type: Spontaneous
  Country: ID (occurrence: ID)
  Receive Date: 20250730
  Receipt Date: 20250730
  Transmission Date: 20251021
  Serious: Yes (Hospitalization, Other)
  Sender: RANBAXY
  Company Number: ID-SUN PHARMACEUTICAL INDUSTRIES LTD-2025R1-519521

PATIENT
  Age: 57 Year
  Sex: Female

DRUGS (1)
  1. ISOSORBIDE [Suspect]
     Active Substance: ISOSORBIDE
     Indication: Coronary artery disease
     Route: 065

REACTIONS (4)
  - Drug ineffective [Unknown]
  - Headache [Recovering/Resolving]
  - Anxiety [Recovered/Resolved]
  - Quality of life decreased [Unknown]
